FAERS Safety Report 9844416 (Version 1)
Quarter: 2014Q1

REPORT INFORMATION
  Report Type: Spontaneous
  Country: US (occurrence: US)
  Receive Date: 20140127
  Receipt Date: 20140127
  Transmission Date: 20141002
  Serious: Yes (Other)
  Sender: FDA-Public Use
  Company Number: CHPA2014US000984

PATIENT
  Age: 65 Year
  Sex: Female

DRUGS (5)
  1. EX-LAX UNKNOWN [Suspect]
     Indication: CONSTIPATION
     Dosage: UNK UNK, ONCE/SINGLE
     Route: 048
  2. BENEFIBER W/ WHEAT DEXTRIN [Suspect]
     Indication: CONSTIPATION
     Dosage: 1 TSP, TID
     Route: 048
  3. BENEFIBER W/ WHEAT DEXTRIN [Suspect]
     Indication: OFF LABEL USE
  4. BENEFIBER SUGAR FREE [Suspect]
     Indication: CONSTIPATION
     Dosage: 1 DF, ONCE OR TWICE A DAY
     Route: 048
  5. BENEFIBER SUGAR FREE [Suspect]
     Indication: OFF LABEL USE

REACTIONS (4)
  - Haemorrhoids [Unknown]
  - Bowel movement irregularity [Recovered/Resolved]
  - Therapeutic response unexpected [Unknown]
  - Underdose [Unknown]
